FAERS Safety Report 17095214 (Version 1)
Quarter: 2019Q4

REPORT INFORMATION
  Report Type: Spontaneous
  Country: US (occurrence: US)
  Receive Date: 20191104
  Receipt Date: 20191104
  Transmission Date: 20200122
  Serious: Yes (Hospitalization)
  Sender: FDA-Public Use
  Company Number: None

PATIENT
  Age: 69 Year
  Sex: Female

DRUGS (16)
  1. CRESTOR [Concomitant]
     Active Substance: ROSUVASTATIN CALCIUM
  2. METHOTREXATE TAB 2.5MG [Concomitant]
     Active Substance: METHOTREXATE
  3. VITAMIN C TAB 250 MG [Concomitant]
  4. PANTOPRAZOLE TAB 40MG [Concomitant]
  5. LEXAPRO TAB 20 MG [Concomitant]
  6. THIAMINE HCL TAB 100MG [Concomitant]
  7. STELARA [Suspect]
     Active Substance: USTEKINUMAB
     Dosage: ?          OTHER FREQUENCY:1 X EVERY 3 MONTHS;?
     Route: 058
  8. IRON TAB 27 MG [Concomitant]
  9. PLAVIX [Concomitant]
     Active Substance: CLOPIDOGREL BISULFATE
  10. MYRBETRIQ TAB 50MG [Concomitant]
  11. ASPIRIN LOW TAB 81MG EC [Concomitant]
  12. DIAVAN TAB 80MG [Concomitant]
  13. BACLOFEN TAB 10MG [Concomitant]
  14. LOSARTAN POT TAB 100MG [Concomitant]
  15. ENBREL LINJ 50 MG/ML [Concomitant]
  16. NORVASC TAB 5MG [Concomitant]

REACTIONS (3)
  - Cerebrovascular accident [None]
  - Pruritus [None]
  - Seizure [None]

NARRATIVE: CASE EVENT DATE: 20191031
